FAERS Safety Report 4751605-X (Version None)
Quarter: 2005Q3

REPORT INFORMATION
  Report Type: 
  Country: None (occurrence: None)
  Receive Date: 20050822
  Receipt Date: 20050822
  Transmission Date: 20060218
  Serious: Yes (Hospitalization, Other)
  Sender: FDA-Public Use
  Company Number: None

PATIENT
  Age: 60 Year
  Sex: Female

DRUGS (4)
  1. LIPITOR [Suspect]
     Indication: HYPERLIPIDAEMIA
     Dosage: 10 MG Q DAY
     Dates: start: 20050429, end: 20050815
  2. HYDROCHLOROTHIAMINE [Concomitant]
  3. COZAAR [Concomitant]
  4. GLUCOTROL XL [Concomitant]

REACTIONS (1)
  - LIVER FUNCTION TEST ABNORMAL [None]
